FAERS Safety Report 6116116-8 (Version None)
Quarter: 2009Q1

REPORT INFORMATION
  Report Type: 
  Country: None (occurrence: None)
  Receive Date: 20090314
  Receipt Date: 20081201
  Transmission Date: 20090719
  Serious: No
  Sender: FDA-Public Use
  Company Number: US-ABBOTT-08P-163-0490277-00

PATIENT
  Sex: Female
  Weight: 57.658 kg

DRUGS (3)
  1. HUMIRA [Suspect]
     Indication: RHEUMATOID ARTHRITIS
     Dosage: PFS
     Dates: start: 20050101, end: 20081101
  2. HUMIRA [Suspect]
     Dosage: PEN
     Dates: start: 20081101, end: 20081130
  3. HUMIRA [Suspect]
     Indication: RHEUMATOID ARTHRITIS
     Dates: start: 20081101, end: 20081130

REACTIONS (2)
  - COUGH [None]
  - OROPHARYNGEAL PAIN [None]
